FAERS Safety Report 8600436-9 (Version None)
Quarter: 2012Q3

REPORT INFORMATION
  Report Type: 
  Country: None (occurrence: None)
  Receive Date: 20120802
  Receipt Date: 20120723
  Transmission Date: 20120928
  Serious: Yes (Hospitalization, Other)
  Sender: FDA-Public Use
  Company Number: 1364906

PATIENT
  Age: 16 Year
  Sex: Male

DRUGS (6)
  1. ETOPOSIDE [Suspect]
     Indication: CNS GERMINOMA
  2. VINCRISTINE SULFATE [Suspect]
     Indication: CNS GERMINOMA
  3. THERAPEUTIC RADIOPHARMACEUTICALS [Suspect]
     Indication: CNS GERMINOMA
     Dosage: 23.4 GY
  4. CYCLOPHOSPHAMIDE [Suspect]
     Indication: CNS GERMINOMA
  5. CISPLATIN [Suspect]
     Indication: CNS GERMINOMA
  6. IFOSFAMIDE [Suspect]
     Indication: CNS GERMINOMA

REACTIONS (6)
  - OROMANDIBULAR DYSTONIA [None]
  - PARKINSONISM [None]
  - DYSTONIA [None]
  - ENCEPHALOPATHY [None]
  - TORTICOLLIS [None]
  - BLEPHAROSPASM [None]
